FAERS Safety Report 9663531 (Version 1)
Quarter: 2013Q4

REPORT INFORMATION
  Report Type: Spontaneous
  Country: US (occurrence: US)
  Receive Date: 20131101
  Receipt Date: 20131101
  Transmission Date: 20140711
  Serious: No
  Sender: FDA-Public Use
  Company Number: US-PFIZER INC-2013311809

PATIENT
  Age: 77 Year
  Sex: Female
  Weight: 77.1 kg

DRUGS (2)
  1. GABAPENTIN [Suspect]
     Dosage: 50 MG, 2X/DAY
  2. LYRICA [Suspect]
     Indication: NEUROPATHY PERIPHERAL
     Dosage: 50 MG, 3X/DAY
     Dates: start: 2011, end: 201310

REACTIONS (6)
  - Somnolence [Unknown]
  - Dizziness [Unknown]
  - Disturbance in attention [Unknown]
  - Balance disorder [Unknown]
  - Weight increased [Unknown]
  - Drug ineffective [Unknown]
